FAERS Safety Report 11021865 (Version 4)
Quarter: 2015Q4

REPORT INFORMATION
  Report Type: Report from Study
  Country: DE (occurrence: DE)
  Receive Date: 20150413
  Receipt Date: 20151202
  Transmission Date: 20160304
  Serious: Yes (Hospitalization)
  Sender: FDA-Public Use
  Company Number: DE-INCYTE CORPORATION-2015IN001466

PATIENT
  Age: 94 Year
  Sex: Female
  Weight: 44.5 kg

DRUGS (8)
  1. CONCOR [Concomitant]
     Active Substance: BISOPROLOL FUMARATE
     Dosage: 6.25 MG, QD (PER DAY)
     Route: 065
     Dates: start: 20150428
  2. AMLODIPINE [Concomitant]
     Active Substance: AMLODIPINE BESYLATE
     Indication: HYPERTENSION
     Dosage: 5 MG, QD (PER DAY)
     Route: 065
     Dates: start: 20150312
  3. AMLODIPINE [Concomitant]
     Active Substance: AMLODIPINE BESYLATE
     Dosage: 10 MG, QD (PER DAY)
     Route: 065
     Dates: start: 20150428
  4. INCB018424 [Suspect]
     Active Substance: RUXOLITINIB
     Indication: MYELOFIBROSIS
     Dosage: 2 DF, QD (20 MG PER DAY)
     Route: 048
     Dates: start: 20140619
  5. RAMIPRIL. [Concomitant]
     Active Substance: RAMIPRIL
     Dosage: 10 MG, QD (PER DAY)
     Route: 065
     Dates: start: 20150527
  6. CONCOR [Concomitant]
     Active Substance: BISOPROLOL FUMARATE
     Indication: HYPERTENSION
     Dosage: 3.75 MG, QD (PER DAY)
     Route: 065
     Dates: start: 20050705
  7. RAMIPRIL. [Concomitant]
     Active Substance: RAMIPRIL
     Indication: HYPERTENSION
     Dosage: 5 MG, QD (PER DAY)
     Route: 065
     Dates: start: 20150304, end: 20150526
  8. INCB018424 [Suspect]
     Active Substance: RUXOLITINIB
     Dosage: 2 DF, QD (5MG PER DAY)
     Route: 048
     Dates: start: 20140626

REACTIONS (2)
  - Pelvic venous thrombosis [Recovered/Resolved]
  - Coagulopathy [Not Recovered/Not Resolved]

NARRATIVE: CASE EVENT DATE: 20150325
